FAERS Safety Report 9236189 (Version 1)
Quarter: 2013Q2

REPORT INFORMATION
  Report Type: Spontaneous
  Country: US (occurrence: None)
  Receive Date: 20130416
  Receipt Date: 20130416
  Transmission Date: 20140414
  Serious: Yes (Life-Threatening, Hospitalization)
  Sender: FDA-Public Use
  Company Number: None

PATIENT
  Age: 73 Year
  Sex: Male
  Weight: 113.4 kg

DRUGS (1)
  1. AZATHIOPRINE [Suspect]
     Indication: LUNG DISORDER
     Dosage: 2 TABLETS
     Dates: start: 20130228, end: 20130403

REACTIONS (9)
  - Fatigue [None]
  - Dyspnoea [None]
  - Hypotension [None]
  - Pancreatitis [None]
  - Haematochezia [None]
  - Tremor [None]
  - Chills [None]
  - Asthenia [None]
  - Dizziness [None]
